FAERS Safety Report 9435006 (Version 1)
Quarter: 2013Q3

REPORT INFORMATION
  Report Type: Spontaneous
  Country: TR (occurrence: None)
  Receive Date: 20130730
  Receipt Date: 20130730
  Transmission Date: 20140515
  Serious: Yes (Hospitalization)
  Sender: FDA-Public Use
  Company Number: COL_14035_2013

PATIENT
  Age: 44 Year
  Sex: Female

DRUGS (7)
  1. COLGATE TOTAL UNSPECIFIED TOOTHPASTE (SODIUM FLUORIDE 0.32 % W/W, TRICLOSAN 0.3 % W/W) [Suspect]
     Indication: DENTAL CARIES
     Route: 048
  2. COLGATE TOTAL UNSPECIFIED TOOTHPASTE (SODIUM FLUORIDE 0.32 % W/W, TRICLOSAN 0.3 % W/W) [Suspect]
     Indication: DENTAL PLAQUE
     Route: 048
  3. COLGATE TOTAL UNSPECIFIED TOOTHPASTE (SODIUM FLUORIDE 0.32 % W/W, TRICLOSAN 0.3 % W/W) [Suspect]
     Indication: GINGIVITIS
     Route: 048
  4. EXCIPIAL LIPO [Suspect]
     Indication: PRODUCT USED FOR UNKNOWN INDICATION
  5. HIPOKORT [Suspect]
     Indication: PRODUCT USED FOR UNKNOWN INDICATION
  6. ROZA [Suspect]
     Indication: PRODUCT USED FOR UNKNOWN INDICATION
  7. PROTEX [Suspect]
     Indication: PRODUCT USED FOR UNKNOWN INDICATION

REACTIONS (5)
  - Swollen tongue [None]
  - Dyspnoea [None]
  - Lip swelling [None]
  - Urticaria [None]
  - Urticaria contact [None]
